FAERS Safety Report 4553494-5 (Version None)
Quarter: 2005Q1

REPORT INFORMATION
  Report Type: 
  Country: None (occurrence: None)
  Receive Date: 20050112
  Receipt Date: 20050104
  Transmission Date: 20050727
  Serious: Yes (Hospitalization)
  Sender: FDA-Public Use
  Company Number: USA-2005-0018228

PATIENT
  Age: 68 Year
  Sex: Female

DRUGS (3)
  1. CEFDITOREN PIVOXIL  (CEFDITOREN PIVOXIL) [Suspect]
     Indication: PURULENCE
     Dosage: 300 MG, TID, ORAL
     Route: 048
     Dates: start: 20041122, end: 20041123
  2. EBRANTIL (URAPIDIL) [Suspect]
     Indication: HYPERTONIC BLADDER
     Dosage: 30 MG, BID, ORAL
     Route: 048
     Dates: start: 20041117, end: 20041120
  3. TOKISYAKUYAKUSAN(HERBAL EXTRACTS NOS) [Suspect]
     Indication: HYPERTONIC BLADDER
     Dosage: 7.5 MG, TID, ORAL
     Route: 048
     Dates: start: 20041117, end: 20041120

REACTIONS (4)
  - ALANINE AMINOTRANSFERASE INCREASED [None]
  - ANOREXIA [None]
  - ASPARTATE AMINOTRANSFERASE INCREASED [None]
  - LIVER DISORDER [None]
